FAERS Safety Report 9320410 (Version 2)
Quarter: 2013Q3

REPORT INFORMATION
  Report Type: Spontaneous
  Country: US (occurrence: US)
  Receive Date: 20130530
  Receipt Date: 20130906
  Transmission Date: 20140515
  Serious: Yes (Hospitalization, Other)
  Sender: FDA-Public Use
  Company Number: US-B.I. PHARMACEUTICALS,INC./RIDGEFIELD-2013-BI-14553BP

PATIENT
  Sex: Female
  Weight: 53.52 kg

DRUGS (5)
  1. PRADAXA [Suspect]
     Indication: ATRIAL FIBRILLATION
     Dosage: 150 MG
     Route: 048
     Dates: start: 20110617, end: 20111017
  2. AMITRIPTYLINE [Concomitant]
     Dosage: 25 MG
     Route: 048
  3. CARDIZEM [Concomitant]
     Dosage: 240 MG
     Route: 048
  4. SYNTHROID [Concomitant]
     Dosage: 50 MCG
     Route: 048
  5. VITAMIN D [Concomitant]
     Route: 048

REACTIONS (8)
  - Presyncope [Unknown]
  - Fall [Unknown]
  - Thoracic vertebral fracture [Unknown]
  - Haemoglobin decreased [Unknown]
  - Orthostatic hypotension [Recovered/Resolved]
  - Anaemia [Unknown]
  - Haematochezia [Recovered/Resolved]
  - Gastrointestinal haemorrhage [Unknown]
